FAERS Safety Report 19089003 (Version 3)
Quarter: 2021Q2

REPORT INFORMATION
  Report Type: Report from Study
  Country: None (occurrence: BE)
  Receive Date: 20210403
  Receipt Date: 20210524
  Transmission Date: 20210717
  Serious: Yes (Hospitalization)
  Sender: FDA-Public Use
  Company Number: BE-ABBVIE-16P-013-1619461-00

PATIENT
  Age: 71 Year
  Sex: Female

DRUGS (18)
  1. DUODOPA [Suspect]
     Active Substance: CARBIDOPA\LEVODOPA
     Dosage: AM: 4ML; CD: 1ML/H FOR 16HRS; ED: 0.5ML
     Route: 050
     Dates: start: 20160708, end: 20161117
  2. DUODOPA [Suspect]
     Active Substance: CARBIDOPA\LEVODOPA
     Dosage: AM=2ML, CD=0.8ML/HR DURING 16HRS, ED=0.5ML
     Route: 050
     Dates: start: 20170227, end: 20171204
  3. DUODOPA [Suspect]
     Active Substance: CARBIDOPA\LEVODOPA
     Dosage: AM=4ML, CD=0.8ML/HR DURING 16HRS, ED=0.5ML
     Route: 050
     Dates: start: 20161209, end: 20170227
  4. ASAFLOW [Concomitant]
     Active Substance: ASPIRIN
     Indication: PRODUCT USED FOR UNKNOWN INDICATION
  5. DUODOPA [Suspect]
     Active Substance: CARBIDOPA\LEVODOPA
     Dosage: DOSAGES CONTINUOUSLY MONITORED AND ADJUSTED
     Route: 050
     Dates: start: 20120113, end: 20150104
  6. DUODOPA [Suspect]
     Active Substance: CARBIDOPA\LEVODOPA
     Dosage: AM= 4ML; CD= 1,2ML/H DURING 16 H; ED=0,5 ML
     Route: 050
     Dates: start: 20161117, end: 20161209
  7. DUODOPA [Suspect]
     Active Substance: CARBIDOPA\LEVODOPA
     Dosage: MD=2ML;CD=0.9 ML/HR DURING 16HRS; ED=0.5ML
     Route: 050
     Dates: start: 20171205, end: 20181203
  8. MIRAPEXIN [Concomitant]
     Active Substance: PRAMIPEXOLE
     Indication: PRODUCT USED FOR UNKNOWN INDICATION
     Dosage: AT 8.00 AM
  9. PROLOPA HBS [Concomitant]
     Active Substance: BENSERAZIDE\LEVODOPA
     Indication: PRODUCT USED FOR UNKNOWN INDICATION
     Dosage: AT 22.00 HOURS
  10. STALEVO [Concomitant]
     Active Substance: CARBIDOPA\ENTACAPONE\LEVODOPA
     Indication: PRODUCT USED FOR UNKNOWN INDICATION
     Dosage: AT 8.00. 14.00 AND 20.00 HOURS
  11. STALEVO [Concomitant]
     Active Substance: CARBIDOPA\ENTACAPONE\LEVODOPA
     Dosage: AT 11.00, 17.00 AND 22.00 HOURS
  12. DUODOPA [Suspect]
     Active Substance: CARBIDOPA\LEVODOPA
     Dosage: AM:4ML; CD:1.1ML/H (AM) 0.8ML/H (PM)FOR 16HRS IN TOTAL; ED:1ML
     Route: 050
     Dates: start: 20160104, end: 20160426
  13. DUODOPA [Suspect]
     Active Substance: CARBIDOPA\LEVODOPA
     Dosage: MD=2ML;CD=1ML/HR DURING 16HRS; ED=0.5ML
     Route: 050
     Dates: start: 20171204, end: 20171205
  14. DUODOPA [Suspect]
     Active Substance: CARBIDOPA\LEVODOPA
     Dosage: MD=1.5ML, CD=0.8ML/HR DURING 16HRS, ED=0.5ML
     Route: 050
     Dates: start: 20181203, end: 20200626
  15. DUODOPA [Suspect]
     Active Substance: CARBIDOPA\LEVODOPA
     Dosage: MD=1.5ML, CD=1.1ML/HR DURING 16HRS, ED=0.5ML
     Route: 050
     Dates: start: 20200626, end: 20200731
  16. DUODOPA [Suspect]
     Active Substance: CARBIDOPA\LEVODOPA
     Indication: PARKINSON^S DISEASE
     Dosage: AM: 5ML; CD: 2.3ML/H FOR 16HRS; ED: 1.5ML
     Route: 050
     Dates: start: 20120109, end: 20120113
  17. DUODOPA [Suspect]
     Active Substance: CARBIDOPA\LEVODOPA
     Dosage: AM: 4ML; CD: 1ML/H FOR 16HRS; ED: 1ML
     Route: 050
     Dates: start: 20160426, end: 20160708
  18. DUODOPA [Suspect]
     Active Substance: CARBIDOPA\LEVODOPA
     Dosage: MD=1.5ML, CD=0.9ML/HR DURING 16HRS, ED=0.5ML
     Route: 050
     Dates: start: 20200731

REACTIONS (25)
  - Stoma site reaction [Unknown]
  - Klebsiella infection [Recovered/Resolved]
  - Stoma site hypergranulation [Recovered/Resolved]
  - Infection [Unknown]
  - Muscle spasms [Unknown]
  - Gait disturbance [Unknown]
  - Device alarm issue [Unknown]
  - Device issue [Unknown]
  - Device connection issue [Recovered/Resolved]
  - Impaired healing [Not Recovered/Not Resolved]
  - Hypoaesthesia [Not Recovered/Not Resolved]
  - Malaise [Unknown]
  - Stoma site discharge [Not Recovered/Not Resolved]
  - Stoma site erythema [Recovering/Resolving]
  - Device dislocation [Recovered/Resolved]
  - Stoma site reaction [Recovered/Resolved]
  - Wound complication [Recovering/Resolving]
  - Musculoskeletal disorder [Unknown]
  - Skin lesion [Recovered/Resolved]
  - Medical device site dryness [Unknown]
  - Stoma site pain [Recovering/Resolving]
  - Dyskinesia [Not Recovered/Not Resolved]
  - Polyneuropathy [Not Recovered/Not Resolved]
  - Stoma site pain [Unknown]
  - Skin irritation [Recovering/Resolving]

NARRATIVE: CASE EVENT DATE: 202002
